FAERS Safety Report 7825665-3 (Version None)
Quarter: 2011Q4

REPORT INFORMATION
  Report Type: 
  Country: None (occurrence: None)
  Receive Date: 20111017
  Receipt Date: 20110930
  Transmission Date: 20120403
  Serious: Yes (Other)
  Sender: FDA-Public Use
  Company Number: 2011PROUSA00635

PATIENT
  Age: 66 Year
  Sex: Male
  Weight: 110.7 kg

DRUGS (7)
  1. ALPRAZOLAM [Concomitant]
  2. HYDRALAZINE HCL [Concomitant]
  3. CARVEDILOL [Concomitant]
  4. PROCRIT	/00909301/ (ERYTHROPOIETIN) [Concomitant]
  5. GLIPIZIDE [Concomitant]
  6. PROVENGE [Suspect]
     Indication: PROSTATE CANCER METASTATIC
     Dosage: 250 ML, SINGLE, INTRAVENOUS
     Route: 042
     Dates: start: 20110822, end: 20110822
  7. PHOSLO [Concomitant]

REACTIONS (2)
  - FATIGUE [None]
  - HAEMOLYTIC ANAEMIA [None]
